FAERS Safety Report 12009058 (Version 1)
Quarter: 2016Q1

REPORT INFORMATION
  Report Type: Spontaneous
  Country: US (occurrence: None)
  Receive Date: 20160204
  Receipt Date: 20160204
  Transmission Date: 20160526
  Serious: No
  Sender: FDA-Public Use
  Company Number: None

PATIENT
  Age: 64 Year
  Sex: Female

DRUGS (5)
  1. BACLOFEN. [Concomitant]
     Active Substance: BACLOFEN
  2. GABAPENTIN. [Concomitant]
     Active Substance: GABAPENTIN
  3. AMPYRA [Suspect]
     Active Substance: DALFAMPRIDINE
     Indication: MULTIPLE SCLEROSIS
     Route: 048
     Dates: start: 20110719
  4. REBIF [Concomitant]
     Active Substance: INTERFERON BETA-1A
  5. AMANTADINE [Concomitant]
     Active Substance: AMANTADINE

REACTIONS (2)
  - Laboratory test abnormal [None]
  - Urine odour abnormal [None]

NARRATIVE: CASE EVENT DATE: 20160114
